FAERS Safety Report 16656743 (Version 1)
Quarter: 2019Q3

REPORT INFORMATION
  Report Type: Spontaneous
  Country: US (occurrence: US)
  Receive Date: 20190801
  Receipt Date: 20190801
  Transmission Date: 20191004
  Serious: No
  Sender: FDA-Public Use
  Company Number: US-PFIZER INC-2019328436

PATIENT
  Age: 60 Year
  Sex: Female

DRUGS (1)
  1. ADVIL [Suspect]
     Active Substance: IBUPROFEN
     Indication: PAIN
     Dosage: 8-10 DF, 1X/DAY FOR 3 MONTHS ON A DAILY BASIS

REACTIONS (2)
  - Fatigue [Unknown]
  - Drug ineffective [Unknown]
